FAERS Safety Report 9220359 (Version 1)
Quarter: 2013Q2

REPORT INFORMATION
  Report Type: Spontaneous
  Country: IN (occurrence: IN)
  Receive Date: 20130409
  Receipt Date: 20130409
  Transmission Date: 20140414
  Serious: Yes (Death, Life-Threatening)
  Sender: FDA-Public Use
  Company Number: IN-ROCHE-1208033

PATIENT
  Age: 75 Year
  Sex: Male

DRUGS (3)
  1. METALYSE [Suspect]
     Indication: CHEST PAIN
     Route: 042
     Dates: start: 20110714, end: 20110714
  2. METALYSE [Suspect]
     Indication: ACUTE MYOCARDIAL INFARCTION
  3. ENOXAPARIN [Concomitant]

REACTIONS (4)
  - Basal ganglia haemorrhage [Fatal]
  - Brain herniation [Fatal]
  - Intraventricular haemorrhage [Fatal]
  - Electrocardiogram ST segment elevation [Unknown]
